FAERS Safety Report 9250633 (Version 1)
Quarter: 2013Q1

REPORT INFORMATION
  Report Type: Spontaneous
  Country: US (occurrence: None)
  Receive Date: 20130305
  Receipt Date: 20130305
  Transmission Date: 20140127
  Serious: Yes (Hospitalization)
  Sender: FDA-Public Use
  Company Number: 163-21880-12062477

PATIENT
  Age: 57 Year
  Sex: Male
  Weight: 93.9 kg

DRUGS (9)
  1. REVLIMID [Suspect]
     Indication: PLASMA CELL MYELOMA
     Route: 048
     Dates: start: 20111130
  2. DEXAMETHASONE (DEXAMETHASONE) [Concomitant]
  3. ACYCLOVIR (ACICLOVIR) (ACICLOVIR) [Concomitant]
  4. ATENOLOL [Concomitant]
  5. CIPRO (CIPROFLOXACIN) [Concomitant]
  6. CELEXA (CITALOPRAM HYDROBROMIDE) [Concomitant]
  7. HCTZ (HYDROCHLOROTHIAZIDE) [Concomitant]
  8. OXYCODONE (OXYCODONE) [Concomitant]
  9. LMN975 [Concomitant]

REACTIONS (1)
  - Diverticulitis [None]
